FAERS Safety Report 5684292-7 (Version None)
Quarter: 2008Q1

REPORT INFORMATION
  Report Type: 
  Country: None (occurrence: None)
  Receive Date: 20080328
  Receipt Date: 20080317
  Transmission Date: 20080703
  Serious: Yes (Death, Other)
  Sender: FDA-Public Use
  Company Number: FR-TYCO HEALTHCARE/MALLINCKRODT-T200800549

PATIENT

DRUGS (2)
  1. HEXABRIX [Suspect]
     Indication: ANGIOGRAM
     Dosage: 17.5 ML, SINGLE
     Dates: start: 20080204, end: 20080204
  2. HEXABRIX [Suspect]
     Dosage: 17.5 ML, SINGLE
     Dates: start: 20080204, end: 20080204

REACTIONS (10)
  - ABDOMINAL PAIN UPPER [None]
  - ANAPHYLACTIC SHOCK [None]
  - ANURIA [None]
  - ATRIAL FIBRILLATION [None]
  - ATRIOVENTRICULAR BLOCK [None]
  - CONDITION AGGRAVATED [None]
  - ISCHAEMIA [None]
  - LOSS OF CONSCIOUSNESS [None]
  - MALAISE [None]
  - NAUSEA [None]
